FAERS Safety Report 20081922 (Version 1)
Quarter: 2021Q4

REPORT INFORMATION
  Report Type: Spontaneous
  Country: US (occurrence: None)
  Receive Date: 20211117
  Receipt Date: 20211117
  Transmission Date: 20220303
  Serious: Yes (Other)
  Sender: FDA-Public Use
  Company Number: None

PATIENT
  Age: 82 Year
  Sex: Female

DRUGS (1)
  1. REPATHA [Suspect]
     Active Substance: EVOLOCUMAB
     Indication: Hyperlipidaemia
     Dosage: FREQUENCY : EVERY OTHER WEEK;?
     Dates: start: 20211104, end: 20211117

REACTIONS (5)
  - Confusional state [None]
  - Musculoskeletal stiffness [None]
  - Muscular weakness [None]
  - Agitation [None]
  - Impaired driving ability [None]
